FAERS Safety Report 13509601 (Version 2)
Quarter: 2017Q3

REPORT INFORMATION
  Report Type: Spontaneous
  Country: US (occurrence: US)
  Receive Date: 20170503
  Receipt Date: 20170803
  Transmission Date: 20171127
  Serious: No
  Sender: FDA-Public Use
  Company Number: US-SA-2017SA025232

PATIENT
  Age: 77 Year
  Sex: Male
  Weight: 68 kg

DRUGS (9)
  1. VITAMIN D3 [Concomitant]
     Active Substance: CHOLECALCIFEROL
  2. PRALUENT [Suspect]
     Active Substance: ALIROCUMAB
     Indication: TYPE IIA HYPERLIPIDAEMIA
     Route: 058
     Dates: start: 20160629, end: 20170125
  3. FISH OIL [Concomitant]
     Active Substance: FISH OIL
  4. VITAMIN B COMPLEX [Concomitant]
     Active Substance: CYANOCOBALAMIN\DEXPANTHENOL\NIACINAMIDE\PYRIDOXINE HYDROCHLORIDE\RIBOFLAVIN 5^-PHOSPHATE SODIUM\THIAMINE HYDROCHLORIDE\VITAMIN B COMPLEX
  5. GLUCOSAMINE HYDROCHLORIDE [Concomitant]
     Active Substance: GLUCOSAMINE HYDROCHLORIDE
  6. VIAGRA [Concomitant]
     Active Substance: SILDENAFIL CITRATE
  7. COENZYME Q10 [Concomitant]
     Active Substance: UBIDECARENONE
  8. ALIROCUMAB PREFILLED PEN [Concomitant]
     Active Substance: ALIROCUMAB
     Dates: start: 20160629, end: 20170125
  9. ASPIRIN. [Concomitant]
     Active Substance: ASPIRIN

REACTIONS (18)
  - Tendon rupture [Recovering/Resolving]
  - Impaired healing [Unknown]
  - Disturbance in attention [Recovering/Resolving]
  - Tendon injury [Recovering/Resolving]
  - Exercise tolerance decreased [Unknown]
  - Cognitive disorder [Recovering/Resolving]
  - Disorientation [Recovering/Resolving]
  - Blood creatine phosphokinase increased [Unknown]
  - Blood glucose increased [Unknown]
  - Performance status decreased [Unknown]
  - General physical health deterioration [Unknown]
  - Pain [Unknown]
  - Tendon pain [Recovering/Resolving]
  - Fall [Unknown]
  - Memory impairment [Recovering/Resolving]
  - Hypersomnia [Recovering/Resolving]
  - Arthralgia [Recovering/Resolving]
  - Loss of personal independence in daily activities [Unknown]

NARRATIVE: CASE EVENT DATE: 2016
